FAERS Safety Report 26109579 (Version 2)
Quarter: 2025Q4

REPORT INFORMATION
  Report Type: Report from Study
  Country: US (occurrence: US)
  Receive Date: 20251201
  Receipt Date: 20251223
  Transmission Date: 20260118
  Serious: No
  Sender: JOHNSON AND JOHNSON
  Company Number: US-JNJFOC-20251158294

PATIENT
  Age: 6 Decade
  Sex: Female

DRUGS (1)
  1. GUSELKUMAB [Suspect]
     Active Substance: GUSELKUMAB
     Indication: Psoriasis
     Dosage: WEEK 0 (JUL-2025 IN MD OFFICE), WEEK 4 (21-AUG-2025) THEN EVERY 8 WEEKS THEREAFTER (DATE UNKNOWN)
     Route: 058
     Dates: start: 202507

REACTIONS (2)
  - Product dose omission issue [Unknown]
  - Device leakage [Unknown]
